FAERS Safety Report 4697001-5 (Version None)
Quarter: 2005Q2

REPORT INFORMATION
  Report Type: 
  Country: None (occurrence: None)
  Receive Date: 20050127
  Receipt Date: 20050127
  Transmission Date: 20051028
  Serious: No
  Sender: FDA-Public Use
  Company Number: None

PATIENT
  Age: 81 Year
  Sex: Female
  Weight: 49.4421 kg

DRUGS (1)
  1. DILANTIN [Suspect]
     Dosage: 100MG PO TID
     Route: 048

REACTIONS (1)
  - DRUG INTOLERANCE [None]
